FAERS Safety Report 6035440-0 (Version None)
Quarter: 2009Q1

REPORT INFORMATION
  Report Type: 
  Country: None (occurrence: None)
  Receive Date: 20090113
  Receipt Date: 20090105
  Transmission Date: 20090719
  Serious: Yes (Other)
  Sender: FDA-Public Use
  Company Number: JP-BRISTOL-MYERS SQUIBB COMPANY-14464549

PATIENT
  Age: 48 Year
  Sex: Male
  Weight: 60 kg

DRUGS (10)
  1. ABILIFY [Suspect]
     Indication: SCHIZOPHRENIA
     Dosage: 28JU-04JUL,3MG/D;05JU-08AU,24MG/D;9-22AU,12MG/D;23AU-05SE,6MG;6SE-10NO,30MG/D;11-22NOV,12MG/D;23NOV
     Route: 048
     Dates: start: 20080628
  2. CONTOMIN [Concomitant]
     Dates: start: 20070126
  3. URSO 250 [Concomitant]
     Dates: start: 20080216
  4. BIPERIDEN HYDROCHLORIDE TAB [Concomitant]
     Dates: start: 20080301, end: 20081103
  5. MAGMITT [Concomitant]
     Dates: start: 20080305
  6. DEPAKENE [Concomitant]
     Dates: start: 20080312, end: 20081110
  7. SENNOSIDE [Concomitant]
     Dates: start: 20080319
  8. LACTULOSE (GEN) SYRUP [Concomitant]
     Dates: start: 20080320
  9. ZOTEPINE [Concomitant]
     Dates: start: 20081106, end: 20081122
  10. CHLORPROMAZINE HCL [Concomitant]
     Dates: start: 20081113

REACTIONS (4)
  - DELUSION [None]
  - HALLUCINATION [None]
  - INSOMNIA [None]
  - PLATELET COUNT DECREASED [None]
